FAERS Safety Report 21919656 (Version 2)
Quarter: 2023Q1

REPORT INFORMATION
  Report Type: Spontaneous
  Country: BR (occurrence: BR)
  Receive Date: 20230127
  Receipt Date: 20230221
  Transmission Date: 20230418
  Serious: Yes (Other)
  Sender: FDA-Public Use
  Company Number: BR-GLAXOSMITHKLINE-BR2023AMR011044

PATIENT

DRUGS (1)
  1. ANORO ELLIPTA [Suspect]
     Active Substance: UMECLIDINIUM BROMIDE\VILANTEROL TRIFENATATE
     Indication: Emphysema
     Dosage: UNK, QD, 62.5/25 MCG
     Dates: start: 20230123

REACTIONS (6)
  - Seizure [Unknown]
  - Peripheral swelling [Unknown]
  - Prostatic disorder [Unknown]
  - Pain in extremity [Unknown]
  - Arthralgia [Unknown]
  - Product complaint [Unknown]
